FAERS Safety Report 7588139-3 (Version None)
Quarter: 2011Q2

REPORT INFORMATION
  Report Type: 
  Country: None (occurrence: None)
  Receive Date: 20110627
  Receipt Date: 20110613
  Transmission Date: 20111010
  Serious: Yes (Hospitalization)
  Sender: FDA-Public Use
  Company Number: DSA_45175_2011

PATIENT
  Sex: Female
  Weight: 61.2356 kg

DRUGS (5)
  1. DEPLIN [Concomitant]
  2. APLENZIN [Suspect]
     Indication: DEPRESSION
     Dosage: (348 MG QD ORAL) (522 MG QD ORAL)
     Dates: start: 20100409, end: 20101124
  3. APLENZIN [Suspect]
     Indication: DEPRESSION
     Dosage: (348 MG QD ORAL) (522 MG QD ORAL)
     Dates: start: 20101221, end: 20110116
  4. FOLIC ACID [Concomitant]
  5. B-12 VITAMIN [Concomitant]

REACTIONS (4)
  - LOSS OF CONSCIOUSNESS [None]
  - POSTMENOPAUSAL HAEMORRHAGE [None]
  - CONVULSION [None]
  - DRUG HYPERSENSITIVITY [None]
